FAERS Safety Report 19362736 (Version 1)
Quarter: 2021Q2

REPORT INFORMATION
  Report Type: Spontaneous
  Country: IT (occurrence: IT)
  Receive Date: 20210601
  Receipt Date: 20210601
  Transmission Date: 20210717
  Serious: Yes (Hospitalization, Other)
  Sender: FDA-Public Use
  Company Number: IT-MYLANLABS-2021M1031298

PATIENT
  Age: 9 Year
  Sex: Male

DRUGS (8)
  1. RISPERIDONE. [Suspect]
     Active Substance: RISPERIDONE
     Indication: PSYCHOTIC DISORDER
     Dosage: 1.5 MILLIGRAM, QD
     Route: 065
  2. BIPERIDENE [Suspect]
     Active Substance: BIPERIDEN
     Indication: EPILEPSY
  3. OXCARBAZEPINE. [Suspect]
     Active Substance: OXCARBAZEPINE
     Indication: INTELLECTUAL DISABILITY
     Dosage: 750 MILLIGRAM, QD
     Route: 065
  4. OXCARBAZEPINE. [Suspect]
     Active Substance: OXCARBAZEPINE
     Indication: PSYCHOTIC DISORDER
  5. BIPERIDENE [Suspect]
     Active Substance: BIPERIDEN
     Indication: INTELLECTUAL DISABILITY
     Dosage: 100 MILLIGRAM, QD
     Route: 065
  6. RISPERIDONE. [Suspect]
     Active Substance: RISPERIDONE
     Indication: INTELLECTUAL DISABILITY
  7. BIPERIDENE [Suspect]
     Active Substance: BIPERIDEN
     Indication: PSYCHOTIC DISORDER
  8. OXCARBAZEPINE. [Suspect]
     Active Substance: OXCARBAZEPINE
     Indication: EPILEPSY

REACTIONS (2)
  - Drug ineffective [Unknown]
  - Enuresis [Recovered/Resolved]
